FAERS Safety Report 9771060 (Version 2)
Quarter: 2014Q2

REPORT INFORMATION
  Report Type: Spontaneous
  Country: IT (occurrence: IT)
  Receive Date: 20131218
  Receipt Date: 20140528
  Transmission Date: 20141212
  Serious: Yes (Hospitalization)
  Sender: FDA-Public Use
  Company Number: IT-TEVA-449102ISR

PATIENT
  Age: 23 Year
  Sex: Male

DRUGS (3)
  1. TEVAGRASTIM 30 MIU [Suspect]
     Indication: NEUTROPENIA
     Dosage: 300 MICROGRAM DAILY; CONCENTRATE FOR SOLUTION FOR INJECTION
     Route: 058
     Dates: start: 20131105, end: 20131114
  2. CICLOSPORINA [Concomitant]
     Dosage: 100 MILLIGRAM DAILY;
     Route: 048
     Dates: start: 20131102
  3. MICOFENOLATO MOFETILE [Concomitant]
     Dosage: 3000 MILLIGRAM DAILY;
     Route: 048
     Dates: start: 20131109, end: 20131204

REACTIONS (1)
  - Capillary leak syndrome [Recovered/Resolved]
